FAERS Safety Report 6537405-9 (Version None)
Quarter: 2009Q4

REPORT INFORMATION
  Report Type: 
  Country: None (occurrence: None)
  Receive Date: 20091229
  Receipt Date: 20090925
  Transmission Date: 20100525
  Serious: No
  Sender: FDA-Public Use
  Company Number: 1000009155

PATIENT
  Age: 82 Year
  Sex: Male

DRUGS (6)
  1. BYSTOLIC [Suspect]
     Indication: HYPERTENSION
     Dosage: 10 MG (10 MG, 1 IN 1 D)
     Dates: start: 20090501
  2. NORVASC [Concomitant]
  3. BENICAR [Concomitant]
  4. FLOMAX [Concomitant]
  5. PROSCAR [Concomitant]
  6. ZOLOFT [Concomitant]

REACTIONS (3)
  - BLOOD PRESSURE INCREASED [None]
  - DISORIENTATION [None]
  - FATIGUE [None]
